FAERS Safety Report 5388964-3 (Version None)
Quarter: 2007Q3

REPORT INFORMATION
  Report Type: 
  Country: None (occurrence: None)
  Receive Date: 20070717
  Receipt Date: 20070711
  Transmission Date: 20080115
  Serious: Yes (Hospitalization)
  Sender: FDA-Public Use
  Company Number: PHEH2007US09829

PATIENT
  Age: 65 Year
  Sex: Female
  Weight: 86.167 kg

DRUGS (3)
  1. ATENOLOL [Concomitant]
  2. HYDROCHLOROTHIAZIDE [Concomitant]
  3. TEKTURNA [Suspect]
     Dosage: 150 MG, QD
     Route: 048
     Dates: start: 20070604, end: 20070610

REACTIONS (2)
  - HEAD INJURY [None]
  - SYNCOPE [None]
